FAERS Safety Report 18971443 (Version 1)
Quarter: 2021Q1

REPORT INFORMATION
  Report Type: Spontaneous
  Country: CA (occurrence: CA)
  Receive Date: 20210304
  Receipt Date: 20210304
  Transmission Date: 20210420
  Serious: Yes (Hospitalization, Other)
  Sender: FDA-Public Use
  Company Number: CA-JNJFOC-20210247564

PATIENT
  Age: 59 Year
  Sex: Male

DRUGS (4)
  1. COUMADIN [Concomitant]
     Active Substance: WARFARIN SODIUM
     Route: 065
  2. SODIUM BICARBONATE. [Concomitant]
     Active Substance: SODIUM BICARBONATE
  3. TYLENOL [Concomitant]
     Active Substance: ACETAMINOPHEN
     Indication: HYPERTHERMIA
  4. INFLIXIMAB, RECOMBINANT [Suspect]
     Active Substance: INFLIXIMAB
     Indication: CROHN^S DISEASE
     Route: 042

REACTIONS (13)
  - Clostridium difficile infection [Unknown]
  - Chills [Unknown]
  - Blood creatinine increased [Unknown]
  - Insomnia [Unknown]
  - Malaise [Unknown]
  - International normalised ratio fluctuation [Unknown]
  - Hyperthermia [Unknown]
  - Fatigue [Unknown]
  - Blood pressure increased [Unknown]
  - Headache [Unknown]
  - Condition aggravated [Unknown]
  - Disease recurrence [Unknown]
  - Oedema peripheral [Unknown]
